FAERS Safety Report 4565745-1 (Version None)
Quarter: 2005Q1

REPORT INFORMATION
  Report Type: 
  Country: None (occurrence: None)
  Receive Date: 20050126
  Receipt Date: 20050114
  Transmission Date: 20050727
  Serious: Yes (Other)
  Sender: FDA-Public Use
  Company Number: HQWYE670218JAN05

PATIENT
  Age: 35 Year
  Sex: Male
  Weight: 70.37 kg

DRUGS (1)
  1. ADVIL [Suspect]
     Indication: BACK PAIN
     Dosage: 2-4 TABS DAILY AS NEEDED, ORAL
     Route: 048
     Dates: end: 20050113

REACTIONS (3)
  - SWELLING FACE [None]
  - SWOLLEN TONGUE [None]
  - URTICARIA [None]
